FAERS Safety Report 9236755 (Version 1)
Quarter: 2013Q2

REPORT INFORMATION
  Report Type: Spontaneous
  Country: US (occurrence: None)
  Receive Date: 20130415
  Receipt Date: 20130415
  Transmission Date: 20140414
  Serious: Yes (Hospitalization)
  Sender: FDA-Public Use
  Company Number: FK201301073

PATIENT
  Age: 65 Year
  Sex: Female

DRUGS (2)
  1. DIPHENHYDRAMINE [Suspect]
     Indication: DYSKINESIA
     Route: 042
  2. PROMETHAZINE (PROMETHAZINE) [Concomitant]

REACTIONS (2)
  - Restless legs syndrome [None]
  - Condition aggravated [None]
